FAERS Safety Report 7483319-X (Version None)
Quarter: 2011Q2

REPORT INFORMATION
  Report Type: 
  Country: None (occurrence: None)
  Receive Date: 20110517
  Receipt Date: 20110503
  Transmission Date: 20111010
  Serious: Yes (Other)
  Sender: FDA-Public Use
  Company Number: HR-JNJFOC-20110502888

PATIENT
  Age: 24 Year
  Sex: Female

DRUGS (5)
  1. CLOZAPINE [Concomitant]
     Route: 065
  2. NORDETTE-21 [Concomitant]
     Route: 065
  3. RISPERDAL CONSTA [Suspect]
     Indication: SCHIZOPHRENIA
     Route: 030
     Dates: start: 20090601
  4. FEVARIN [Concomitant]
     Route: 065
  5. RISPERDAL CONSTA [Suspect]
     Route: 030
     Dates: start: 20080901, end: 20090601

REACTIONS (2)
  - OBSESSIVE-COMPULSIVE PERSONALITY DISORDER [None]
  - AGGRESSION [None]
